FAERS Safety Report 15561517 (Version 1)
Quarter: 2018Q4

REPORT INFORMATION
  Report Type: Spontaneous
  Country: PE (occurrence: PE)
  Receive Date: 20181029
  Receipt Date: 20181029
  Transmission Date: 20190205
  Serious: Yes (Disabling, Other)
  Sender: FDA-Public Use
  Company Number: PE-PFIZER INC-2018437619

PATIENT
  Sex: Female

DRUGS (1)
  1. LIPITOR [Suspect]
     Active Substance: ATORVASTATIN CALCIUM
     Dosage: UNK

REACTIONS (4)
  - Musculoskeletal discomfort [Unknown]
  - Rhabdomyolysis [Unknown]
  - Movement disorder [Not Recovered/Not Resolved]
  - Pain [Unknown]
